FAERS Safety Report 8924843 (Version 1)
Quarter: 2012Q4

REPORT INFORMATION
  Report Type: 
  Country: US (occurrence: US)
  Receive Date: 20121126
  Receipt Date: 20121126
  Transmission Date: 20130627
  Serious: Yes (Hospitalization)
  Sender: FDA-Public Use
  Company Number: US-BAYER-2012-121429

PATIENT
  Age: 29 Year
  Sex: Female
  Weight: 100.68 kg

DRUGS (29)
  1. YAZ [Suspect]
  2. CLARITIN [Concomitant]
     Indication: MULTIPLE ALLERGIES
     Dosage: 1 tab daily
     Route: 048
  3. SINGULAIR [Concomitant]
     Indication: MULTIPLE ALLERGIES
     Dosage: 1 tablet daily
     Route: 048
  4. NASONEX [Concomitant]
     Dosage: 2 sprays daily
     Route: 045
  5. ZOFRAN [Concomitant]
     Indication: NAUSEA
     Dosage: 4 mg, 1 tab every 8 hours as needed
     Route: 042
     Dates: start: 20081209
  6. REGLAN [Concomitant]
     Indication: NAUSEA
     Dosage: 10 mg, every four to six hours as needed
     Route: 042
     Dates: start: 20081209
  7. REGLAN [Concomitant]
     Indication: VOMITING
  8. MORPHINE [Concomitant]
     Dosage: 4 mg, UNK
     Route: 042
     Dates: start: 20081209
  9. TYLENOL #3 [Concomitant]
     Dosage: 1 tablet prn
     Route: 048
  10. LORTAB [Concomitant]
     Indication: PAIN
     Dosage: 5 mg, Q4HR, PRN
     Route: 048
  11. LORTAB [Concomitant]
     Indication: PAIN
     Dosage: 500 mg, Q4HR, PRN
     Route: 048
  12. LORTAB [Concomitant]
     Indication: PAIN
     Dosage: 7.5 mg, two tablets Q4HR
  13. LORTAB [Concomitant]
     Indication: PAIN
     Dosage: 15 mg, UNK
  14. PERCOCET [Concomitant]
     Dosage: 5 mg, 1 to 2 tabs every 6 hours as needed
     Route: 048
  15. PERCOCET [Concomitant]
     Dosage: 325 mg, 1 to 2 tabs every 6 hours as needed
     Route: 048
  16. DIAMOX [Concomitant]
     Dosage: 250 mg, UNK
     Route: 048
  17. DEPACON [Concomitant]
     Dosage: 500 mg, UNK
     Route: 042
  18. IBUPROFEN [Concomitant]
     Dosage: 800 mg, UNK
     Route: 048
  19. PREDNISONE [Concomitant]
     Dosage: 60 mg, daily
     Route: 048
  20. PREDNISONE [Concomitant]
     Dosage: 30 mg, for two days
  21. PREDNISONE [Concomitant]
     Dosage: 20 mg, for two days
  22. PREDNISONE [Concomitant]
     Dosage: 10 mg, for two days
  23. PRILOSEC [Concomitant]
     Indication: GERD
     Dosage: 20 [as written] - 1 tab (interpreted as tablet) daily
     Route: 048
  24. TORADOL [Concomitant]
  25. SALINE [Concomitant]
     Route: 042
  26. FENTANYL [Concomitant]
     Indication: HEADACHE
     Dosage: 25 mcg every 72 hours
  27. NORVASC [Concomitant]
     Dosage: 5 mg, daily
  28. METFORMIN [Concomitant]
     Dosage: 500 mg, daily
  29. SEASONIQUE [Concomitant]
     Dosage: UNK
     Dates: start: 20080528, end: 20081020

REACTIONS (2)
  - Superior sagittal sinus thrombosis [None]
  - Transverse sinus thrombosis [None]
